FAERS Safety Report 20933624 (Version 2)
Quarter: 2025Q2

REPORT INFORMATION
  Report Type: Spontaneous
  Country: US (occurrence: US)
  Receive Date: 20220608
  Receipt Date: 20250526
  Transmission Date: 20250716
  Serious: No
  Sender: ELI LILLY AND COMPANY
  Company Number: US-ELI_LILLY_AND_COMPANY-US202206003109

PATIENT
  Age: 75 Year
  Sex: Male

DRUGS (2)
  1. HUMALOG [Suspect]
     Active Substance: INSULIN LISPRO
     Indication: Product used for unknown indication
     Route: 058
  2. HUMALOG [Suspect]
     Active Substance: INSULIN LISPRO
     Route: 058

REACTIONS (2)
  - Macular oedema [Not Recovered/Not Resolved]
  - Hypoacusis [Unknown]
